FAERS Safety Report 5871991-7 (Version None)
Quarter: 2008Q3

REPORT INFORMATION
  Report Type: 
  Country: None (occurrence: None)
  Receive Date: 20080904
  Receipt Date: 20080904
  Transmission Date: 20090109
  Serious: Yes (Hospitalization)
  Sender: FDA-Public Use
  Company Number: None

PATIENT
  Age: 66 Year
  Sex: Male
  Weight: 99.3377 kg

DRUGS (1)
  1. MELOXICAM [Suspect]
     Indication: PAIN IN EXTREMITY
     Dosage: 1 PILL
     Dates: start: 20080808, end: 20080808

REACTIONS (8)
  - ASTHENIA [None]
  - DIZZINESS [None]
  - DRUG HYPERSENSITIVITY [None]
  - HYPERTENSION [None]
  - NAUSEA [None]
  - PALLOR [None]
  - PYREXIA [None]
  - WHITE BLOOD CELL COUNT INCREASED [None]
